FAERS Safety Report 21361159 (Version 1)
Quarter: 2022Q3

REPORT INFORMATION
  Report Type: Report from Study
  Country: US (occurrence: US)
  Receive Date: 20220921
  Receipt Date: 20220921
  Transmission Date: 20221026
  Serious: No
  Sender: FDA-Public Use
  Company Number: US-ABBVIE-4128193

PATIENT
  Age: 70 Year
  Sex: Female

DRUGS (13)
  1. IMBRUVICA [Suspect]
     Active Substance: IBRUTINIB
     Indication: Lymphocytic leukaemia
     Route: 048
     Dates: start: 20220502
  2. ZINC CHELATED [Concomitant]
     Indication: Product used for unknown indication
     Route: 048
  3. Folic Acid Oral Tablet 1 MG [Concomitant]
     Indication: Product used for unknown indication
     Route: 048
  4. Lisinopril Oral Tablet 20 MG [Concomitant]
     Indication: Product used for unknown indication
     Route: 048
  5. Vitamin B12 Oral Tablet 1000 MC [Concomitant]
     Indication: Product used for unknown indication
     Route: 048
  6. Turmeric Oral Capsule 450 MG [Concomitant]
     Indication: Product used for unknown indication
     Route: 048
  7. Tumeric Complex Oral Capsule 500 [Concomitant]
     Indication: Product used for unknown indication
     Route: 048
  8. Atenolol Oral Tablet 50 MG [Concomitant]
     Indication: Product used for unknown indication
     Route: 048
  9. Loratadine Oral Tablet 10 MG [Concomitant]
     Indication: Product used for unknown indication
     Route: 048
  10. Calcium Oral Tablet 600 MG [Concomitant]
     Indication: Product used for unknown indication
     Route: 048
  11. Vitamin D3 Oral Capsule 50 MCG [Concomitant]
     Indication: Product used for unknown indication
     Route: 048
  12. Simvastatin Oral Tablet 20 MG [Concomitant]
     Indication: Product used for unknown indication
     Route: 048
  13. hydrochlorothiazide Oral Tablet 25 [Concomitant]
     Indication: Product used for unknown indication
     Route: 048

REACTIONS (2)
  - COVID-19 [Recovered/Resolved]
  - Feeding disorder [Unknown]

NARRATIVE: CASE EVENT DATE: 20220816
